FAERS Safety Report 6937678-4 (Version None)
Quarter: 2010Q3

REPORT INFORMATION
  Report Type: 
  Country: None (occurrence: None)
  Receive Date: 20100820
  Receipt Date: 20100820
  Transmission Date: 20110219
  Serious: Yes (Other)
  Sender: FDA-Public Use
  Company Number: None

PATIENT
  Sex: Female
  Weight: 56.6996 kg

DRUGS (2)
  1. DEPO-PROVERA [Suspect]
  2. NUVARING [Suspect]

REACTIONS (1)
  - LOSS OF LIBIDO [None]
